FAERS Safety Report 16571701 (Version 2)
Quarter: 2019Q3

REPORT INFORMATION
  Report Type: Spontaneous
  Country: US (occurrence: US)
  Receive Date: 20190715
  Receipt Date: 20190718
  Transmission Date: 20191004
  Serious: No
  Sender: FDA-Public Use
  Company Number: US-PFIZER INC-2019292468

PATIENT
  Age: 30 Year
  Weight: 83.91 kg

DRUGS (2)
  1. VIAGRA [Suspect]
     Active Substance: SILDENAFIL CITRATE
     Dosage: 100 MG, UNK(100 MG, ORALLY)
     Route: 048
     Dates: start: 20190703
  2. MARIJUANA [Interacting]
     Active Substance: CANNABIS SATIVA SUBSP. INDICA TOP
     Dosage: UNK

REACTIONS (3)
  - Penile swelling [Unknown]
  - Dysuria [Not Recovered/Not Resolved]
  - Drug interaction [Unknown]
